FAERS Safety Report 10958737 (Version 2)
Quarter: 2015Q2

REPORT INFORMATION
  Report Type: Spontaneous
  Country: US (occurrence: US)
  Receive Date: 20150326
  Receipt Date: 20150413
  Transmission Date: 20150821
  Serious: Yes (Hospitalization)
  Sender: FDA-Public Use
  Company Number: US-BAYER-2015-070675

PATIENT
  Age: 31 Year
  Sex: Female
  Weight: 158.73 kg

DRUGS (2)
  1. LISINOPRIL AND HYDROCHLOROTHIAZIDE [Concomitant]
     Active Substance: HYDROCHLOROTHIAZIDE\LISINOPRIL
     Indication: HYPERTENSION
     Dosage: UNK
     Dates: start: 2005
  2. MIRENA [Suspect]
     Active Substance: LEVONORGESTREL
     Indication: MENORRHAGIA
     Dosage: 20 MCG/24HR, CONT
     Dates: start: 20080502, end: 20130523

REACTIONS (8)
  - Injury [None]
  - Pain [None]
  - Embedded device [None]
  - Dyspareunia [None]
  - Menorrhagia [None]
  - Cerebrovascular accident [None]
  - Off label use [None]
  - Abdominal pain [None]

NARRATIVE: CASE EVENT DATE: 200805
